FAERS Safety Report 8932455 (Version 2)
Quarter: 2013Q1

REPORT INFORMATION
  Report Type: Spontaneous
  Country: US (occurrence: US)
  Receive Date: 20121128
  Receipt Date: 20130130
  Transmission Date: 20140127
  Serious: Yes (Hospitalization, Other)
  Sender: FDA-Public Use
  Company Number: US-ELI_LILLY_AND_COMPANY-US201211005857

PATIENT
  Age: 75 Year
  Sex: Female
  Weight: 54.42 kg

DRUGS (10)
  1. FORTEO [Suspect]
     Indication: OSTEOPOROSIS
     Dosage: UNK UNK, QD
     Dates: start: 201102
  2. METFORMIN [Concomitant]
  3. LISINOPRIL [Concomitant]
  4. LASIX [Concomitant]
  5. PAXIL [Concomitant]
  6. PRAVASTATIN [Concomitant]
  7. DILTIAZEM [Concomitant]
  8. DUONEB [Concomitant]
  9. VITAMIN D [Concomitant]
  10. AMARYL [Concomitant]

REACTIONS (1)
  - Cerebrovascular accident [Recovered/Resolved]
